FAERS Safety Report 10416421 (Version 2)
Quarter: 2014Q3

REPORT INFORMATION
  Report Type: Spontaneous
  Country: US (occurrence: US)
  Receive Date: 20140828
  Receipt Date: 20140828
  Transmission Date: 20150326
  Serious: Yes (Hospitalization)
  Sender: FDA-Public Use
  Company Number: US-GLAXOSMITHKLINE-A0761188A

PATIENT
  Sex: Male
  Weight: 81.8 kg

DRUGS (7)
  1. AVANDAMET [Suspect]
     Active Substance: METFORMIN HYDROCHLORIDE\ROSIGLITAZONE MALEATE
     Indication: TYPE 2 DIABETES MELLITUS
     Route: 048
     Dates: start: 2004, end: 200612
  2. IMIPRAMINE [Concomitant]
     Active Substance: IMIPRAMINE
  3. FUROSEMIDE. [Concomitant]
     Active Substance: FUROSEMIDE
  4. ASPIRIN. [Concomitant]
     Active Substance: ASPIRIN
  5. VITAMIN [Concomitant]
     Active Substance: VITAMINS
  6. AVANDIA [Suspect]
     Active Substance: ROSIGLITAZONE MALEATE
     Indication: TYPE 2 DIABETES MELLITUS
     Dosage: 4MG PER DAY
     Route: 048
     Dates: start: 2004, end: 200612
  7. GLUCOTROL [Concomitant]
     Active Substance: GLIPIZIDE

REACTIONS (7)
  - Atrial flutter [Unknown]
  - Pericarditis uraemic [Unknown]
  - Pericardial effusion [Unknown]
  - Pleural effusion [Unknown]
  - Heart rate increased [Unknown]
  - Monoplegia [Unknown]
  - Atrial fibrillation [Unknown]
